FAERS Safety Report 10912058 (Version 4)
Quarter: 2017Q3

REPORT INFORMATION
  Report Type: Spontaneous
  Country: CN (occurrence: CN)
  Receive Date: 20150313
  Receipt Date: 20170706
  Transmission Date: 20171127
  Serious: Yes (Hospitalization, Other)
  Sender: FDA-Public Use
  Company Number: CN-JNJFOC-20150305923

PATIENT
  Age: 18 Year
  Sex: Male
  Weight: 56 kg

DRUGS (4)
  1. REMICADE [Suspect]
     Active Substance: INFLIXIMAB
     Indication: ANKYLOSING SPONDYLITIS
     Route: 042
     Dates: start: 20150122, end: 20150205
  2. SULFASALAZINE. [Concomitant]
     Active Substance: SULFASALAZINE
     Route: 065
     Dates: start: 20141201
  3. METHOTREXATE. [Concomitant]
     Active Substance: METHOTREXATE
     Route: 065
     Dates: start: 20141201
  4. THALIDOMIDE [Concomitant]
     Active Substance: THALIDOMIDE
     Route: 065

REACTIONS (1)
  - Lymph node tuberculosis [Recovered/Resolved]

NARRATIVE: CASE EVENT DATE: 20150223
